FAERS Safety Report 15284529 (Version 1)
Quarter: 2018Q3

REPORT INFORMATION
  Report Type: Spontaneous
  Country: US (occurrence: US)
  Receive Date: 20180801
  Receipt Date: 20180801
  Transmission Date: 20181010
  Serious: Yes (Other)
  Sender: FDA-Public Use
  Company Number: None

PATIENT
  Age: 59 Year
  Sex: Female
  Weight: 66.6 kg

DRUGS (1)
  1. RECLAST [Suspect]
     Active Substance: ZOLEDRONIC ACID
     Indication: OSTEOPOROSIS
     Dosage: ?          OTHER FREQUENCY:YEARLY;?
     Route: 041
     Dates: start: 20180730, end: 20180730

REACTIONS (18)
  - Diarrhoea [None]
  - Pain [None]
  - Hypoaesthesia [None]
  - Fear [None]
  - Back pain [None]
  - Impaired work ability [None]
  - Influenza like illness [None]
  - Emotional distress [None]
  - Feeling abnormal [None]
  - Pyrexia [None]
  - Chills [None]
  - Arthralgia [None]
  - Chest pain [None]
  - Nausea [None]
  - Insurance issue [None]
  - Anxiety [None]
  - Cardiac flutter [None]
  - Dysphagia [None]

NARRATIVE: CASE EVENT DATE: 20180730
